FAERS Safety Report 23983356 (Version 1)
Quarter: 2024Q2

REPORT INFORMATION
  Report Type: Spontaneous
  Country: AU (occurrence: AU)
  Receive Date: 20240617
  Receipt Date: 20240617
  Transmission Date: 20240715
  Serious: Yes (Hospitalization, Other)
  Sender: FDA-Public Use
  Company Number: AU-009507513-2406AUS004426

PATIENT
  Age: 75 Year
  Sex: Male

DRUGS (7)
  1. KEYTRUDA [Suspect]
     Active Substance: PEMBROLIZUMAB
     Indication: Angiosarcoma
     Dosage: 200 MILLIGRAM, Q3W
     Route: 042
     Dates: start: 20230510, end: 20230531
  2. RESIQUIMOD [Suspect]
     Active Substance: RESIQUIMOD
     Indication: Angiosarcoma
     Dosage: 0.5 MILLIGRAM
     Route: 036
     Dates: start: 20210510, end: 20210531
  3. PALEXIA [Concomitant]
     Active Substance: TAPENTADOL HYDROCHLORIDE
  4. SOTALOL [Concomitant]
     Active Substance: SOTALOL
  5. LERCANIDIPINE [Concomitant]
     Active Substance: LERCANIDIPINE
  6. DABIGATRAN [Concomitant]
     Active Substance: DABIGATRAN
  7. LISINOPRIL [Concomitant]
     Active Substance: LISINOPRIL

REACTIONS (1)
  - Febrile neutropenia [Not Recovered/Not Resolved]

NARRATIVE: CASE EVENT DATE: 20230605
